FAERS Safety Report 9331125 (Version 2)
Quarter: 2013Q2

REPORT INFORMATION
  Report Type: Spontaneous
  Country: IT (occurrence: IT)
  Receive Date: 20130605
  Receipt Date: 20130607
  Transmission Date: 20140414
  Serious: Yes (Hospitalization)
  Sender: FDA-Public Use
  Company Number: IT-SANOFI-AVENTIS-2013SA054518

PATIENT
  Age: 74 Year
  Sex: Male

DRUGS (10)
  1. METFORMIN [Suspect]
     Indication: DIABETES MELLITUS
     Route: 048
     Dates: start: 20130101, end: 20130425
  2. SOLOSA [Suspect]
     Indication: DIABETES MELLITUS
     Dosage: DOSE:1 UNIT(S)
     Route: 048
     Dates: start: 20130101, end: 20130425
  3. GALVUS [Suspect]
     Indication: DIABETES MELLITUS
     Dosage: STRENGTH:50MG DOSE:1 UNIT(S)
     Route: 048
     Dates: start: 20130101, end: 20130425
  4. CIPRALEX [Concomitant]
     Route: 048
  5. TAVOR [Concomitant]
     Route: 048
  6. MADOPAR [Concomitant]
     Route: 048
  7. FOLINA [Concomitant]
     Route: 048
  8. LORTAAN [Concomitant]
     Route: 048
  9. NORVASC [Concomitant]
  10. PLAVIX [Concomitant]

REACTIONS (4)
  - Presyncope [Unknown]
  - Hypoglycaemia [Unknown]
  - Syncope [Unknown]
  - Fall [Unknown]
